FAERS Safety Report 10751544 (Version 1)
Quarter: 2015Q1

REPORT INFORMATION
  Report Type: Spontaneous
  Country: US (occurrence: None)
  Receive Date: 20150129
  Receipt Date: 20150129
  Transmission Date: 20150721
  Serious: Yes (Hospitalization)
  Sender: FDA-Public Use
  Company Number: None

PATIENT
  Age: 72 Year
  Sex: Male
  Weight: 63.96 kg

DRUGS (1)
  1. SUNITINIB MALATE [Suspect]
     Active Substance: SUNITINIB MALATE
     Dates: end: 20150101

REACTIONS (4)
  - Memory impairment [None]
  - Visual impairment [None]
  - Unresponsive to stimuli [None]
  - Headache [None]

NARRATIVE: CASE EVENT DATE: 20150102
